FAERS Safety Report 7231120-4 (Version None)
Quarter: 2011Q1

REPORT INFORMATION
  Report Type: 
  Country: None (occurrence: None)
  Receive Date: 20110118
  Receipt Date: 20110112
  Transmission Date: 20110831
  Serious: Yes (Death, Other)
  Sender: FDA-Public Use
  Company Number: US-ABBOTT-11P-163-0696588-00

PATIENT
  Sex: Male
  Weight: 114 kg

DRUGS (3)
  1. FENTANYL [Suspect]
     Indication: DRUG ABUSE
     Route: 062
  2. XANAX [Concomitant]
     Indication: PRODUCT USED FOR UNKNOWN INDICATION
  3. VICODIN [Suspect]
     Indication: BACK PAIN

REACTIONS (7)
  - PLEURAL EFFUSION [None]
  - RESPIRATORY ARREST [None]
  - SUDDEN DEATH [None]
  - INCORRECT DOSE ADMINISTERED [None]
  - CARDIOMEGALY [None]
  - HEADACHE [None]
  - BRAIN OEDEMA [None]
